FAERS Safety Report 26176656 (Version 1)
Quarter: 2025Q4

REPORT INFORMATION
  Report Type: Report from Study
  Country: EU (occurrence: EU)
  Receive Date: 20251218
  Receipt Date: 20251218
  Transmission Date: 20260117
  Serious: Yes (Other)
  Sender: ABBVIE
  Company Number: EU-ABBVIE-6597718

PATIENT
  Age: 68 Year
  Sex: Female

DRUGS (1)
  1. ELAHERE [Suspect]
     Active Substance: MIRVETUXIMAB SORAVTANSINE-GYNX
     Indication: Ovarian cancer
     Dosage: IBW DOSING
     Route: 042
     Dates: start: 202509

REACTIONS (2)
  - Disease progression [Not Recovered/Not Resolved]
  - Dry eye [Recovered/Resolved]
